FAERS Safety Report 6454163-7 (Version None)
Quarter: 2009Q4

REPORT INFORMATION
  Report Type: 
  Country: None (occurrence: None)
  Receive Date: 20091124
  Receipt Date: 20091118
  Transmission Date: 20100525
  Serious: Yes (Other)
  Sender: FDA-Public Use
  Company Number: GXKR2007GB01657

PATIENT
  Age: 40 Year
  Sex: Male
  Weight: 90 kg

DRUGS (4)
  1. TRAMADOL (NGX) [Suspect]
     Indication: POSTOPERATIVE ANALGESIA
     Dosage: 50 MG, QID
     Route: 048
     Dates: start: 20070117, end: 20070118
  2. LACTULOSE [Concomitant]
     Indication: HAEMORRHOID OPERATION
     Dosage: 20 ML, BID
     Route: 048
     Dates: start: 20070117
  3. PARACETAMOL [Concomitant]
     Indication: HAEMORRHOID OPERATION
     Dosage: 1 G, QID
     Route: 048
     Dates: start: 20070117
  4. RANITIDINE [Concomitant]
     Indication: GASTROOESOPHAGEAL REFLUX DISEASE
     Dosage: 150 MG, QD
     Route: 048
     Dates: start: 20010101

REACTIONS (1)
  - FACIAL PALSY [None]
